FAERS Safety Report 18092667 (Version 1)
Quarter: 2020Q3

REPORT INFORMATION
  Report Type: Spontaneous
  Country: FR (occurrence: FR)
  Receive Date: 20200730
  Receipt Date: 20200730
  Transmission Date: 20201103
  Serious: Yes (Hospitalization)
  Sender: FDA-Public Use
  Company Number: FR-MYLANLABS-2020M1067053

PATIENT
  Age: 33 Year
  Sex: Male

DRUGS (3)
  1. BUPIVACAINE MYLAN [Suspect]
     Active Substance: BUPIVACAINE
     Indication: SPINAL ANAESTHESIA
     Dosage: 2 MILLIGRAM
     Dates: start: 20200711
  2. SUFENTANIL [Suspect]
     Active Substance: SUFENTANIL
     Indication: SPINAL ANAESTHESIA
     Dosage: 2.5 MILLIGRAM
     Dates: start: 20200711
  3. CLONIDINE. [Concomitant]
     Active Substance: CLONIDINE
     Dosage: 25 MICROGRAM
     Dates: start: 20200711

REACTIONS (2)
  - Anaesthetic complication [Unknown]
  - Drug ineffective [Unknown]

NARRATIVE: CASE EVENT DATE: 20200711
